FAERS Safety Report 7739284-0 (Version None)
Quarter: 2011Q3

REPORT INFORMATION
  Report Type: 
  Country: None (occurrence: None)
  Receive Date: 20110909
  Receipt Date: 20110830
  Transmission Date: 20111222
  Serious: Yes (Other)
  Sender: FDA-Public Use
  Company Number: CA-JNJFOC-20110900172

PATIENT
  Sex: Male
  Weight: 117 kg

DRUGS (5)
  1. METHOTREXATE [Concomitant]
     Dosage: GTTS
     Route: 065
  2. KETOROLAC TROMETHAMINE [Concomitant]
     Dosage: DROPS PER MINUTE
     Route: 065
  3. ATENOLOL [Concomitant]
     Dosage: GTTS
     Route: 065
  4. REMICADE [Suspect]
     Indication: ANKYLOSING SPONDYLITIS
     Route: 042
     Dates: start: 20001002
  5. COZAAR [Concomitant]
     Dosage: GTTS
     Route: 065

REACTIONS (1)
  - PANCREATITIS RELAPSING [None]
